FAERS Safety Report 11237563 (Version 2)
Quarter: 2015Q4

REPORT INFORMATION
  Report Type: Spontaneous
  Country: DE (occurrence: DE)
  Receive Date: 20150703
  Receipt Date: 20151015
  Transmission Date: 20160304
  Serious: Yes (Hospitalization, Other)
  Sender: FDA-Public Use
  Company Number: DE-JNJFOC-20150518753

PATIENT
  Age: 47 Year
  Sex: Female
  Weight: 64 kg

DRUGS (4)
  1. PREDNISOLON [Concomitant]
     Active Substance: PREDNISOLONE
     Indication: PREMEDICATION
     Route: 042
  2. REMICADE [Suspect]
     Active Substance: INFLIXIMAB
     Indication: COLITIS ULCERATIVE
     Dosage: LAST INFUSION
     Route: 042
     Dates: start: 20150310
  3. REMICADE [Suspect]
     Active Substance: INFLIXIMAB
     Indication: COLITIS ULCERATIVE
     Route: 042
     Dates: start: 201410
  4. REMICADE [Suspect]
     Active Substance: INFLIXIMAB
     Indication: COLITIS ULCERATIVE
     Route: 042
     Dates: start: 201407

REACTIONS (9)
  - Head discomfort [Unknown]
  - Swelling face [Recovered/Resolved]
  - Salivary hypersecretion [Unknown]
  - Bronchitis [Unknown]
  - Facial paresis [Recovered/Resolved]
  - Hypoaesthesia [Unknown]
  - Hyperacusis [Unknown]
  - Immunosuppression [Unknown]
  - Sinusitis [Unknown]

NARRATIVE: CASE EVENT DATE: 201409
